FAERS Safety Report 4933917-X (Version None)
Quarter: 2006Q1

REPORT INFORMATION
  Report Type: 
  Country: None (occurrence: None)
  Receive Date: 20060303
  Receipt Date: 20060216
  Transmission Date: 20060701
  Serious: No
  Sender: FDA-Public Use
  Company Number: 33964

PATIENT

DRUGS (1)
  1. BSS PLUS [Suspect]
     Indication: SURGERY

REACTIONS (5)
  - ENDOPHTHALMITIS [None]
  - EYE IRRITATION [None]
  - INFLAMMATION [None]
  - POST PROCEDURAL COMPLICATION [None]
  - VITRECTOMY [None]
